FAERS Safety Report 5267869-2 (Version None)
Quarter: 2007Q1

REPORT INFORMATION
  Report Type: 
  Country: None (occurrence: None)
  Receive Date: 20061213
  Receipt Date: 20050207
  Transmission Date: 20070707
  Serious: Yes (Other)
  Sender: FDA-Public Use
  Company Number: 2004UW25057

PATIENT
  Age: 69 Year
  Sex: Male
  Weight: 68.038 kg

DRUGS (3)
  1. IRESSA [Suspect]
     Indication: LUNG NEOPLASM MALIGNANT
     Dates: start: 20031201
  2. ACIPHEX [Concomitant]
  3. COUMADIN [Concomitant]

REACTIONS (6)
  - DIARRHOEA [None]
  - INCREASED VISCOSITY OF BRONCHIAL SECRETION [None]
  - LOWER RESPIRATORY TRACT INFECTION [None]
  - LOWER RESPIRATORY TRACT INFECTION VIRAL [None]
  - RASH PAPULOSQUAMOUS [None]
  - TUMOUR MARKER INCREASED [None]
